FAERS Safety Report 23047720 (Version 1)
Quarter: 2023Q4

REPORT INFORMATION
  Report Type: Spontaneous
  Country: GB (occurrence: None)
  Receive Date: 20231010
  Receipt Date: 20231010
  Transmission Date: 20240109
  Serious: Yes (Disabling, Other)
  Sender: FDA-Public Use
  Company Number: 2023A226129

PATIENT
  Age: 76 Year
  Sex: Female
  Weight: 120 kg

DRUGS (22)
  1. DAPAGLIFLOZIN [Suspect]
     Active Substance: DAPAGLIFLOZIN
     Indication: Cardiac failure
     Dates: start: 20230726, end: 20230824
  2. ASPIRIN [Concomitant]
     Active Substance: ASPIRIN
     Dosage: 1
     Dates: start: 20230509
  3. ATORVASTATIN [Concomitant]
     Active Substance: ATORVASTATIN
     Dosage: 1
     Dates: start: 20230509
  4. AZITHROMYCIN [Concomitant]
     Active Substance: AZITHROMYCIN
     Dosage: 1
     Dates: start: 20230509
  5. BISOPROLOL [Concomitant]
     Active Substance: BISOPROLOL\BISOPROLOL FUMARATE
     Dosage: PER CARDIOLOGY LETTER
     Dates: start: 20230726
  6. CLOBETASOL PROPIONATE [Concomitant]
     Active Substance: CLOBETASOL PROPIONATE
     Dosage: APPLY 1-2 TIMES A DAY
     Route: 061
     Dates: start: 20230807, end: 20230904
  7. CLOTRIMAZOLE [Concomitant]
     Active Substance: CLOTRIMAZOLE
     Dosage: INSERT PESSARY, APPLY CREAM 2-3 TIMES PER DAY
     Dates: start: 20230803, end: 20230804
  8. DERMOL [Concomitant]
     Active Substance: BENZALKONIUM CHLORIDE\CHLORHEXIDINE HYDROCHLORIDE\ISOPROPYL MYRISTATE\PARAFFIN
     Dosage: APPLY AS NEEDED
     Route: 061
     Dates: start: 20230807, end: 20230904
  9. DOCUSATE SODIUM [Concomitant]
     Active Substance: DOCUSATE SODIUM
     Dosage: 1
     Dates: start: 20230509
  10. ESTRIOL [Concomitant]
     Active Substance: ESTRIOL
     Dosage: 1, APPLY AT NIGHT TO VAGINA
     Route: 061
     Dates: start: 20230509
  11. BECLOMETHASONE\FORMOTEROL [Concomitant]
     Active Substance: BECLOMETHASONE\FORMOTEROL
     Dosage: 2, PUFFS
     Route: 055
     Dates: start: 20230509, end: 20230712
  12. CHOLECALCIFEROL [Concomitant]
     Active Substance: CHOLECALCIFEROL
     Dosage: 1
     Dates: start: 20230509
  13. FUROSEMIDE [Concomitant]
     Active Substance: FUROSEMIDE
     Dosage: 1, EACH MORNING
     Dates: start: 20230509
  14. LANSOPRAZOLE [Concomitant]
     Active Substance: LANSOPRAZOLE
     Dosage: 1, IN THE MORNING BEFO...
     Dates: start: 20230509
  15. LUFORBEC [Concomitant]
     Dosage: 2, PUFFS
     Route: 055
     Dates: start: 20230712
  16. MACROGOL COMPOUND [Concomitant]
     Dosage: 1-2 SACHETS DAILY
     Dates: start: 20230509
  17. METFORMIN [Concomitant]
     Active Substance: METFORMIN HYDROCHLORIDE
     Dosage: 1, TAKE ONE AT BREAKFAST AND ONE AT TEATIME
     Dates: start: 20230509
  18. MIRABEGRON [Concomitant]
     Active Substance: MIRABEGRON
     Dosage: 1
     Dates: start: 20230809
  19. PREGABALIN [Concomitant]
     Active Substance: PREGABALIN
     Dosage: 1
     Dates: start: 20230509
  20. RAMIPRIL [Concomitant]
     Active Substance: RAMIPRIL
     Dosage: 1, AT NIGHT AS PER CARDIOLOGY LETTER
     Dates: start: 20230726
  21. SPIRONOLACTONE [Concomitant]
     Active Substance: SPIRONOLACTONE
     Dosage: 1
     Dates: start: 20230824
  22. TRULICITY [Concomitant]
     Active Substance: DULAGLUTIDE
     Dosage: 1
     Dates: start: 20230509

REACTIONS (1)
  - Candida infection [Recovered/Resolved]
